FAERS Safety Report 5508961-4 (Version None)
Quarter: 2007Q4

REPORT INFORMATION
  Report Type: 
  Country: None (occurrence: None)
  Receive Date: 20071107
  Receipt Date: 20070615
  Transmission Date: 20080405
  Serious: Yes (Hospitalization)
  Sender: FDA-Public Use
  Company Number: DE-MERCK-0706DEU00081

PATIENT
  Age: 69 Year
  Sex: Female
  Weight: 69 kg

DRUGS (12)
  1. INVANZ [Suspect]
     Indication: URINARY TRACT INFECTION
     Route: 042
     Dates: start: 20070526, end: 20070526
  2. INVANZ [Suspect]
     Route: 042
     Dates: start: 20070529, end: 20070529
  3. LASIX [Concomitant]
     Route: 065
  4. RAMIPRIL [Concomitant]
     Route: 065
  5. CLONIDINE [Concomitant]
     Route: 065
  6. RENAGEL [Concomitant]
     Route: 065
  7. LOCOL [Concomitant]
     Route: 065
  8. EZETROL [Concomitant]
     Route: 048
  9. PANTOPRAZOLE SODIUM [Concomitant]
     Route: 065
  10. METOPROLOL SUCCINATE [Concomitant]
     Route: 065
  11. TRANSTEC [Concomitant]
     Indication: ARTHRALGIA
     Route: 061
     Dates: start: 20070501
  12. EPOETIN BETA [Concomitant]
     Route: 051

REACTIONS (3)
  - ACUTE PSYCHOSIS [None]
  - OFF LABEL USE [None]
  - ROAD TRAFFIC ACCIDENT [None]
